FAERS Safety Report 25847689 (Version 1)
Quarter: 2025Q3

REPORT INFORMATION
  Report Type: Spontaneous
  Country: US (occurrence: None)
  Receive Date: 20250924
  Receipt Date: 20250924
  Transmission Date: 20251020
  Serious: Yes (unspecified)
  Sender: FDA-CTU
  Company Number: None

PATIENT
  Age: 61 Year
  Sex: Female
  Weight: 80.55 kg

DRUGS (8)
  1. OZEMPIC [Suspect]
     Active Substance: SEMAGLUTIDE
     Indication: Type 2 diabetes mellitus
     Route: 058
     Dates: start: 20230701, end: 20250201
  2. METFORMIN [Concomitant]
     Active Substance: METFORMIN HYDROCHLORIDE
  3. Losartan 25 mg qd [Concomitant]
  4. rosuvastatin 10mg qd [Concomitant]
  5. meclizine 25mg prn [Concomitant]
  6. Calcium 500mg bid [Concomitant]
  7. vitamin D 2000 unit qd [Concomitant]
  8. L-lysine 500mg qd [Concomitant]

REACTIONS (6)
  - Retinitis [None]
  - Asthenopia [None]
  - Visual impairment [None]
  - Fatigue [None]
  - Muscular weakness [None]
  - Muscle atrophy [None]
